FAERS Safety Report 15582519 (Version 1)
Quarter: 2018Q4

REPORT INFORMATION
  Report Type: Spontaneous
  Country: US (occurrence: US)
  Receive Date: 20181105
  Receipt Date: 20181105
  Transmission Date: 20190205
  Serious: Yes (Hospitalization, Disabling)
  Sender: FDA-Public Use
  Company Number: None

PATIENT
  Age: 54 Year
  Sex: Female
  Weight: 90 kg

DRUGS (5)
  1. TYLENOL [Concomitant]
     Active Substance: ACETAMINOPHEN
  2. OTEZLA [Suspect]
     Active Substance: APREMILAST
     Indication: PSORIASIS
     Dosage: ?          QUANTITY:1 TABLET(S);?
     Route: 048
     Dates: start: 20180926
  3. LISINOPRIL/HCTZ [Concomitant]
     Active Substance: HYDROCHLOROTHIAZIDE\LISINOPRIL
  4. METHOTREXATE. [Concomitant]
     Active Substance: METHOTREXATE
  5. NAPROXEN. [Concomitant]
     Active Substance: NAPROXEN

REACTIONS (9)
  - Vision blurred [None]
  - Bone pain [None]
  - Tension headache [None]
  - Tremor [None]
  - Muscular weakness [None]
  - Systemic inflammatory response syndrome [None]
  - Gait disturbance [None]
  - Exercise tolerance decreased [None]
  - Dyspnoea [None]

NARRATIVE: CASE EVENT DATE: 20181003
